FAERS Safety Report 17174569 (Version 1)
Quarter: 2019Q4

REPORT INFORMATION
  Report Type: Spontaneous
  Country: US (occurrence: US)
  Receive Date: 20191219
  Receipt Date: 20191219
  Transmission Date: 20200122
  Serious: No
  Sender: FDA-Public Use
  Company Number: US-JNJFOC-20191222492

PATIENT
  Age: 5 Year
  Sex: Male

DRUGS (1)
  1. NIZORAL [Suspect]
     Active Substance: KETOCONAZOLE
     Indication: TINEA INFECTION
     Route: 061
     Dates: start: 20191211

REACTIONS (2)
  - Product use in unapproved indication [Unknown]
  - Medication error [Unknown]

NARRATIVE: CASE EVENT DATE: 20191211
